FAERS Safety Report 4677871-7 (Version None)
Quarter: 2005Q2

REPORT INFORMATION
  Report Type: 
  Country: None (occurrence: None)
  Receive Date: 20050531
  Receipt Date: 20050527
  Transmission Date: 20051028
  Serious: Yes (Other)
  Sender: FDA-Public Use
  Company Number: US-GLAXOSMITHKLINE-A0560395A

PATIENT
  Age: 24 Year
  Sex: Female

DRUGS (2)
  1. PAXIL CR [Suspect]
     Indication: DRUG USE FOR UNKNOWN INDICATION
     Dosage: 25MG PER DAY
     Route: 048
     Dates: end: 20050501
  2. NO CONCURRENT MEDICATION [Concomitant]

REACTIONS (6)
  - CATAPLEXY [None]
  - DRUG WITHDRAWAL SYNDROME [None]
  - FALL [None]
  - HOT FLUSH [None]
  - MUSCULAR WEAKNESS [None]
  - PARAESTHESIA [None]
